FAERS Safety Report 9993703 (Version 2)
Quarter: 2014Q2

REPORT INFORMATION
  Report Type: Spontaneous
  Country: US (occurrence: US)
  Receive Date: 20140310
  Receipt Date: 20140404
  Transmission Date: 20141212
  Serious: No
  Sender: FDA-Public Use
  Company Number: US-B.I. PHARMACEUTICALS,INC./RIDGEFIELD-2014-BI-09286BP

PATIENT
  Age: 88 Year
  Sex: Male
  Weight: 68 kg

DRUGS (3)
  1. SPIRIVA [Suspect]
     Indication: ASTHMA
     Dosage: 18 MCG
     Route: 055
     Dates: start: 201401
  2. ALBUTEROL [Concomitant]
     Dosage: 10 ML
     Route: 055
  3. SYMBICORT [Concomitant]
     Dosage: 4 PUF
     Route: 055

REACTIONS (2)
  - Dry mouth [Not Recovered/Not Resolved]
  - Off label use [Unknown]
